FAERS Safety Report 4721589-9 (Version None)
Quarter: 2005Q3

REPORT INFORMATION
  Report Type: 
  Country: None (occurrence: None)
  Receive Date: 20050721
  Receipt Date: 20041214
  Transmission Date: 20060218
  Serious: No
  Sender: FDA-Public Use
  Company Number: US-BRISTOL-MYERS SQUIBB COMPANY-12795654

PATIENT
  Age: 82 Year
  Sex: Female
  Weight: 54 kg

DRUGS (7)
  1. COUMADIN [Suspect]
     Indication: HEART RATE IRREGULAR
     Route: 048
     Dates: start: 20041213
  2. PLAVIX [Concomitant]
     Dosage: TAKING FOR SEVERAL MONTHS; PLAN TO STOP ON 17-DEC-2004 AFTER WARFARIN IN SYSTEM FOR 4 DAYS.
     Dates: end: 20041217
  3. CARDIZEM [Concomitant]
     Dosage: TAKEN FOR YEARS
  4. IRON [Concomitant]
  5. ASCORBIC ACID [Concomitant]
  6. NITROFURANTOIN [Concomitant]
     Dosage: FOR LONG TIME
     Route: 048
  7. ASPIRIN [Concomitant]
     Dates: end: 20041213

REACTIONS (1)
  - DIARRHOEA [None]
